FAERS Safety Report 12167673 (Version 1)
Quarter: 2016Q1

REPORT INFORMATION
  Report Type: Spontaneous
  Country: US (occurrence: US)
  Receive Date: 20160310
  Receipt Date: 20160310
  Transmission Date: 20160526
  Serious: Yes (Hospitalization)
  Sender: FDA-Public Use
  Company Number: PHEH2016US005025

PATIENT
  Sex: Male

DRUGS (1)
  1. GILENYA [Suspect]
     Active Substance: FINGOLIMOD HYDROCHLORIDE
     Indication: PRODUCT USED FOR UNKNOWN INDICATION
     Route: 065

REACTIONS (7)
  - Heat stroke [Unknown]
  - Joint swelling [Unknown]
  - Mental status changes [Unknown]
  - Furuncle [Unknown]
  - Dyspnoea [Unknown]
  - Arthritis infective [Unknown]
  - Bronchial disorder [Unknown]
